FAERS Safety Report 20479490 (Version 1)
Quarter: 2022Q1

REPORT INFORMATION
  Report Type: Spontaneous
  Country: US (occurrence: None)
  Receive Date: 20220215
  Receipt Date: 20220215
  Transmission Date: 20220424
  Serious: Yes (Death)
  Sender: FDA-Public Use
  Company Number: None

PATIENT
  Sex: Female
  Weight: 50.35 kg

DRUGS (9)
  1. VERZENIO [Suspect]
     Active Substance: ABEMACICLIB
     Indication: Breast cancer
     Dosage: OTHER FREQUENCY : BID 21 OF 28 DAYS;?
     Route: 048
  2. FASLODEX [Concomitant]
     Active Substance: FULVESTRANT
  3. XGEVA [Concomitant]
     Active Substance: DENOSUMAB
  4. LISINOPRIL [Concomitant]
     Active Substance: LISINOPRIL
  5. SIMVASTATIN [Concomitant]
     Active Substance: SIMVASTATIN
  6. VITAMIN D [Concomitant]
     Active Substance: VITAMIN D NOS
  7. ONDANSETRON [Concomitant]
     Active Substance: ONDANSETRON
  8. ANASTROZOLE [Concomitant]
     Active Substance: ANASTROZOLE
  9. IMODIUM [Concomitant]
     Active Substance: LOPERAMIDE HYDROCHLORIDE

REACTIONS (1)
  - Death [None]
